FAERS Safety Report 7600406-3 (Version None)
Quarter: 2011Q2

REPORT INFORMATION
  Report Type: 
  Country: None (occurrence: None)
  Receive Date: 20110629
  Receipt Date: 20110617
  Transmission Date: 20111010
  Serious: Yes (Life-Threatening)
  Sender: FDA-Public Use
  Company Number: DSJ-2011-11323

PATIENT
  Age: 81 Year
  Sex: Female
  Weight: 38.4 kg

DRUGS (5)
  1. RABEPRAZOLE SODIUM [Concomitant]
  2. DECADRON [Concomitant]
  3. SIMVASTATIN [Concomitant]
  4. OLMESARTAN MEDOXOMIL [Suspect]
     Indication: HYPERTENSION
     Dosage: 20 MG (20 MG, 1 IN 1 D), ORAL
     Route: 048
     Dates: start: 20090629
  5. SELBEX (TEPRENONE) [Concomitant]

REACTIONS (3)
  - HYPOGLYCAEMIC COMA [None]
  - DYSPNOEA [None]
  - METABOLIC ACIDOSIS [None]
